FAERS Safety Report 8305565 (Version 4)
Quarter: 2025Q1

REPORT INFORMATION
  Report Type: Spontaneous
  Country: BR (occurrence: BR)
  Receive Date: 20111221
  Receipt Date: 20250224
  Transmission Date: 20250408
  Serious: Yes (Other)
  Sender: BIOMARIN
  Company Number: BR-BIOMARINP-000284

PATIENT

DRUGS (1)
  1. NAGLAZYME [Suspect]
     Active Substance: GALSULFASE
     Indication: Mucopolysaccharidosis VI
     Dosage: 20MG,QW
     Route: 041
     Dates: start: 20071213

REACTIONS (1)
  - Spinal cord compression [Unknown]

NARRATIVE: CASE EVENT DATE: 20090101
